FAERS Safety Report 9908664 (Version 1)
Quarter: 2014Q1

REPORT INFORMATION
  Report Type: Spontaneous
  Country: US (occurrence: None)
  Receive Date: 20140214
  Receipt Date: 20140214
  Transmission Date: 20141002
  Serious: Yes (Hospitalization)
  Sender: FDA-Public Use
  Company Number: None

PATIENT
  Age: 91 Year
  Sex: Male
  Weight: 86.3 kg

DRUGS (7)
  1. CLINDAMYCIN [Suspect]
     Indication: DENTAL OPERATION
     Dosage: RECENT
     Route: 048
  2. XALATAN [Concomitant]
  3. PRESERVISION [Concomitant]
  4. PEPCID [Concomitant]
  5. ALLEGRA [Concomitant]
  6. METFORMIN [Concomitant]
  7. FISH OIL [Concomitant]

REACTIONS (1)
  - Angioedema [None]
